FAERS Safety Report 14907174 (Version 1)
Quarter: 2018Q2

REPORT INFORMATION
  Report Type: Report from Study
  Country: US (occurrence: US)
  Receive Date: 20180517
  Receipt Date: 20180517
  Transmission Date: 20180711
  Serious: Yes (Other)
  Sender: FDA-Public Use
  Company Number: US-INGENUS PHARMACEUTICALS NJ, LLC-ING201805-000441

PATIENT
  Age: 56 Year
  Sex: Female

DRUGS (2)
  1. CARISOPRODOL, ASPIRIN AND CODEINE PHOSPHATE [Suspect]
     Active Substance: ASPIRIN\CARISOPRODOL\CODEINE PHOSPHATE
     Indication: ARTHRALGIA
     Dosage: 50 PACKETS IN 30 DAYS BEFORE STROKE
  2. CAFFEINE. [Suspect]
     Active Substance: CAFFEINE
     Indication: ARTHRALGIA
     Dosage: 50 PACKETS IN 30 DAYS BEFORE STROKE

REACTIONS (1)
  - Cerebral haemorrhage [Unknown]
